FAERS Safety Report 22016619 (Version 2)
Quarter: 2023Q2

REPORT INFORMATION
  Report Type: Spontaneous
  Country: GB (occurrence: GB)
  Receive Date: 20230221
  Receipt Date: 20230414
  Transmission Date: 20230722
  Serious: Yes (Other)
  Sender: FDA-Public Use
  Company Number: GB-SA-SAC20230220001266

PATIENT
  Age: 47 Year
  Sex: Female

DRUGS (1)
  1. KEVZARA [Suspect]
     Active Substance: SARILUMAB
     Indication: Rheumatoid arthritis
     Dosage: UNK UNK, QOW
     Route: 058
     Dates: start: 2021

REACTIONS (7)
  - Rheumatoid arthritis [Unknown]
  - Pain [Unknown]
  - Gait inability [Unknown]
  - Product dose omission issue [Unknown]
  - Headache [Unknown]
  - Asthenia [Unknown]
  - Pain [Unknown]

NARRATIVE: CASE EVENT DATE: 20220101
